FAERS Safety Report 6769148-0 (Version None)
Quarter: 2010Q2

REPORT INFORMATION
  Report Type: 
  Country: None (occurrence: None)
  Receive Date: 20100603
  Receipt Date: 20100531
  Transmission Date: 20101027
  Serious: Yes (Other)
  Sender: FDA-Public Use
  Company Number: 2010SP018759

PATIENT
  Age: 12 Year
  Sex: Male

DRUGS (2)
  1. DESLORATADINE [Suspect]
     Indication: RHINITIS SEASONAL
     Dosage: PO; 5 MG;QD;PO
     Route: 048
     Dates: end: 20100301
  2. DESLORATADINE [Suspect]
     Indication: RHINITIS SEASONAL
     Dosage: PO; 5 MG;QD;PO
     Route: 048
     Dates: start: 20100301, end: 20100325

REACTIONS (9)
  - CONDITION AGGRAVATED [None]
  - DRUG INEFFECTIVE [None]
  - DYSPNOEA [None]
  - EYE OEDEMA [None]
  - HYPERSENSITIVITY [None]
  - NASAL OEDEMA [None]
  - PHARYNGEAL OEDEMA [None]
  - PRODUCT SUBSTITUTION ISSUE [None]
  - RHINITIS [None]
